FAERS Safety Report 9959830 (Version 3)
Quarter: 2014Q2

REPORT INFORMATION
  Report Type: Spontaneous
  Country: US (occurrence: None)
  Receive Date: 20140228
  Receipt Date: 20140515
  Transmission Date: 20141212
  Serious: Yes (Other)
  Sender: FDA-Public Use
  Company Number: ADR-2014-00303

PATIENT
  Sex: Female

DRUGS (2)
  1. BACLOFEN [Suspect]
     Indication: PAIN
  2. MORPHINE [Suspect]

REACTIONS (21)
  - Agitation [None]
  - Drug withdrawal syndrome [None]
  - Irritability [None]
  - Tremor [None]
  - Feeling cold [None]
  - Hyperhidrosis [None]
  - Rhinorrhoea [None]
  - Paraesthesia [None]
  - Headache [None]
  - Abdominal discomfort [None]
  - Device alarm issue [None]
  - Hypersensitivity [None]
  - Depressed mood [None]
  - Fatigue [None]
  - Catheter site extravasation [None]
  - Incorrect route of drug administration [None]
  - Convulsion [None]
  - Burning sensation [None]
  - Pruritus [None]
  - Abdominal discomfort [None]
  - Injection site haemorrhage [None]
